FAERS Safety Report 4668378-1 (Version None)
Quarter: 2005Q2

REPORT INFORMATION
  Report Type: 
  Country: None (occurrence: None)
  Receive Date: 20050519
  Receipt Date: 20050509
  Transmission Date: 20051028
  Serious: Yes (Other)
  Sender: FDA-Public Use
  Company Number: 2005072427

PATIENT
  Sex: Male

DRUGS (1)
  1. DIFLUCAN [Suspect]
     Indication: OESOPHAGEAL CANDIDIASIS
     Dosage: 200 MG, INTRAVENOUS
     Route: 042

REACTIONS (2)
  - EXTRAVASATION [None]
  - THERMAL BURN [None]
